FAERS Safety Report 13568433 (Version 1)
Quarter: 2017Q2

REPORT INFORMATION
  Report Type: Spontaneous
  Country: FR (occurrence: FR)
  Receive Date: 20170522
  Receipt Date: 20170522
  Transmission Date: 20170830
  Serious: Yes (Hospitalization)
  Sender: FDA-Public Use
  Company Number: FR-PFIZER INC-2017216034

PATIENT
  Age: 68 Year
  Sex: Male

DRUGS (11)
  1. ONCOVIN [Concomitant]
     Active Substance: VINCRISTINE SULFATE
     Indication: B-CELL LYMPHOMA STAGE IV
     Dosage: 2 MG, SINGLE
     Route: 041
     Dates: start: 20170412, end: 20170412
  2. BACTRIM [Interacting]
     Active Substance: SULFAMETHOXAZOLE\TRIMETHOPRIM
     Dosage: 1 DF, DAILY
     Route: 048
     Dates: end: 20170409
  3. ADRIAMYCIN [Concomitant]
     Active Substance: DOXORUBICIN HYDROCHLORIDE
     Indication: B-CELL LYMPHOMA STAGE IV
     Dosage: UNK
     Route: 041
     Dates: start: 20170412, end: 20170412
  4. PREDNISONE. [Concomitant]
     Active Substance: PREDNISONE
     Indication: B-CELL LYMPHOMA STAGE IV
     Dosage: 60 MG, 1X/DAY
     Route: 048
     Dates: start: 20170412, end: 20170416
  5. LANSOPRAZOLE. [Interacting]
     Active Substance: LANSOPRAZOLE
     Dosage: UNK
     Route: 048
  6. VFEND [Suspect]
     Active Substance: VORICONAZOLE
     Dosage: 150 MG, 2X/DAY
     Route: 048
     Dates: start: 20170224
  7. MABTHERA [Concomitant]
     Active Substance: RITUXIMAB
     Indication: B-CELL LYMPHOMA STAGE IV
     Dosage: 700 MG, SINGLE
     Route: 041
     Dates: start: 20170412, end: 20170412
  8. CYCLOPHOSPHAMIDE. [Concomitant]
     Active Substance: CYCLOPHOSPHAMIDE
     Indication: B-CELL LYMPHOMA STAGE IV
     Dosage: UNK
     Route: 041
     Dates: start: 20170412, end: 20170412
  9. METHOTREXATE SODIUM. [Interacting]
     Active Substance: METHOTREXATE SODIUM
     Indication: B-CELL LYMPHOMA STAGE IV
     Dosage: 5400 MG, SINGLE
     Route: 041
     Dates: start: 20170412, end: 20170412
  10. XATRAL LP [Concomitant]
     Active Substance: ALFUZOSIN
     Dosage: 10 MG, 1X/DAY
     Route: 048
  11. ZELITREX [Concomitant]
     Active Substance: VALACYCLOVIR HYDROCHLORIDE
     Dosage: 500 MG, UNK
     Route: 048

REACTIONS (3)
  - Overdose [Recovered/Resolved]
  - Drug interaction [Unknown]
  - Renal failure [Not Recovered/Not Resolved]

NARRATIVE: CASE EVENT DATE: 20170413
